FAERS Safety Report 4277977-0 (Version None)
Quarter: 2004Q1

REPORT INFORMATION
  Report Type: 
  Country: None (occurrence: None)
  Receive Date: 20040120
  Receipt Date: 20040105
  Transmission Date: 20041129
  Serious: Yes (Hospitalization)
  Sender: FDA-Public Use
  Company Number: 701404

PATIENT
  Age: 57 Year
  Sex: Male
  Weight: 74.8435 kg

DRUGS (1)
  1. AMEVIVE [Suspect]
     Indication: PSORIASIS
     Dosage: 15 MG QW IM
     Route: 030
     Dates: start: 20030701, end: 20030916

REACTIONS (2)
  - OSTEOMYELITIS [None]
  - STAPHYLOCOCCAL INFECTION [None]
